FAERS Safety Report 25622916 (Version 1)
Quarter: 2025Q3

REPORT INFORMATION
  Report Type: Spontaneous
  Country: US (occurrence: US)
  Receive Date: 20250730
  Receipt Date: 20250730
  Transmission Date: 20251021
  Serious: No
  Sender: GALPHARM INTERNATIONAL
  Company Number: US-PERRIGO-24US007523

PATIENT
  Age: 14 Year
  Sex: Male
  Weight: 90.703 kg

DRUGS (3)
  1. LORATADINE [Suspect]
     Active Substance: LORATADINE
     Indication: Ear pain
     Dosage: 10 MG, QD
     Route: 048
     Dates: start: 20240803, end: 20240807
  2. LORATADINE [Suspect]
     Active Substance: LORATADINE
     Indication: Prophylaxis
  3. METHYLPHENIDATE [Concomitant]
     Active Substance: METHYLPHENIDATE
     Indication: Product used for unknown indication
     Dosage: 10 MG, QD
     Route: 065

REACTIONS (2)
  - Epistaxis [Recovered/Resolved]
  - Product use in unapproved indication [Unknown]

NARRATIVE: CASE EVENT DATE: 20240803
